FAERS Safety Report 18428718 (Version 1)
Quarter: 2020Q4

REPORT INFORMATION
  Report Type: Report from Study
  Country: ES (occurrence: ES)
  Receive Date: 20201026
  Receipt Date: 20201026
  Transmission Date: 20210114
  Serious: Yes (Hospitalization, Other)
  Sender: FDA-Public Use
  Company Number: ES-ASTRAZENECA-2020SF38623

PATIENT
  Age: 64 Year
  Sex: Male

DRUGS (5)
  1. SULPHONYLUREA [Concomitant]
     Active Substance: UNSPECIFIED INGREDIENT
     Route: 065
  2. HYDROCHLOROTHIAZIDE. [Concomitant]
     Active Substance: HYDROCHLOROTHIAZIDE
     Route: 065
  3. DAPAGLIFLOZIN. [Suspect]
     Active Substance: DAPAGLIFLOZIN
     Indication: TYPE 2 DIABETES MELLITUS
     Route: 048
  4. CALCIUM ANTAGONIST [Concomitant]
     Active Substance: UNSPECIFIED INGREDIENT
     Route: 065
  5. ANGIOTENSIN II RECEPTOR ANTAGONIST [Concomitant]
     Active Substance: UNSPECIFIED INGREDIENT
     Route: 065

REACTIONS (1)
  - Ketosis [Unknown]
